FAERS Safety Report 16598705 (Version 2)
Quarter: 2019Q3

REPORT INFORMATION
  Report Type: Report from Study
  Country: None (occurrence: FR)
  Receive Date: 20190719
  Receipt Date: 20190725
  Transmission Date: 20191004
  Serious: Yes (Hospitalization, Other)
  Sender: FDA-Public Use
  Company Number: FR-ABBVIE-19K-056-2851582-00

PATIENT
  Age: 11 Year
  Sex: Male
  Weight: 55 kg

DRUGS (7)
  1. ALLOPURINOL. [Concomitant]
     Active Substance: ALLOPURINOL
     Indication: PROPHYLAXIS
     Dosage: 100 MG, QD
     Route: 048
     Dates: start: 20190319, end: 20190325
  2. VENETOCLAX. [Suspect]
     Active Substance: VENETOCLAX
     Dosage: 400, QD
     Route: 048
     Dates: start: 20190320, end: 2019
  3. HYCAMTIN [Suspect]
     Active Substance: TOPOTECAN HYDROCHLORIDE
     Indication: REFRACTORY CANCER
     Dosage: 0.59 MG/M2, (DAYS 1-5 OF EACH 21 DAY CYCLE)
     Route: 042
     Dates: start: 20190506, end: 201905
  4. HYCAMTIN [Suspect]
     Active Substance: TOPOTECAN HYDROCHLORIDE
     Dosage: 0.53 MG/M2, (DAYS 1-5 EACH 21 DAY CYCLE)
     Route: 042
     Dates: start: 20190321, end: 20190419
  5. NORMAL SALINE [Concomitant]
     Active Substance: SODIUM CHLORIDE
     Indication: PROPHYLAXIS
     Dosage: 0.9 %, UNK (6 DAYS)
     Route: 042
  6. VENETOCLAX. [Suspect]
     Active Substance: VENETOCLAX
     Indication: REFRACTORY CANCER
     Dosage: 200, QD
     Route: 048
     Dates: start: 20190319, end: 20190319
  7. CYCLOPHOSPHAMIDE. [Suspect]
     Active Substance: CYCLOPHOSPHAMIDE
     Indication: REFRACTORY CANCER
     Dosage: 200 MG/M2, (DAYS 1-5 EACH 21 DAY CYCLE)
     Route: 042
     Dates: start: 20190506

REACTIONS (5)
  - Anaemia [Unknown]
  - Febrile bone marrow aplasia [Unknown]
  - Leukopenia [Not Recovered/Not Resolved]
  - Pyrexia [Unknown]
  - Neutropenia [Not Recovered/Not Resolved]

NARRATIVE: CASE EVENT DATE: 2019
